FAERS Safety Report 18746696 (Version 5)
Quarter: 2025Q3

REPORT INFORMATION
  Report Type: Report from Study
  Country: CA (occurrence: CA)
  Receive Date: 20210115
  Receipt Date: 20250924
  Transmission Date: 20251020
  Serious: Yes (Hospitalization, Other)
  Sender: TAKEDA
  Company Number: CA-TAKEDA-2019TUS006608

PATIENT
  Age: 93 Year
  Sex: Male

DRUGS (16)
  1. VEDOLIZUMAB [Suspect]
     Active Substance: VEDOLIZUMAB
     Indication: Colitis ulcerative
  2. VEDOLIZUMAB [Suspect]
     Active Substance: VEDOLIZUMAB
  3. VEDOLIZUMAB [Suspect]
     Active Substance: VEDOLIZUMAB
  4. CORTISONE [Concomitant]
     Active Substance: CORTISONE
  5. MESALAMINE [Concomitant]
     Active Substance: MESALAMINE
  6. VENLAFAXINE [Concomitant]
     Active Substance: VENLAFAXINE HYDROCHLORIDE
  7. VALSARTAN [Concomitant]
     Active Substance: VALSARTAN
  8. FUROSEMIDE [Concomitant]
     Active Substance: FUROSEMIDE
  9. ALENDRONATE [Concomitant]
     Active Substance: ALENDRONATE SODIUM
  10. CALCIUM [Concomitant]
     Active Substance: CALCIUM
  11. BICALUTAMIDE [Concomitant]
     Active Substance: BICALUTAMIDE
  12. IRON [Concomitant]
     Active Substance: IRON
  13. PANTOPRAZOLE [Concomitant]
     Active Substance: PANTOPRAZOLE
  14. BISOPROLOL [Concomitant]
     Active Substance: BISOPROLOL
  15. Betnesol [Concomitant]
  16. ASPIRIN [Concomitant]
     Active Substance: ASPIRIN
     Dosage: 80 MILLIGRAM, QD

REACTIONS (8)
  - Blood culture positive [Unknown]
  - Sepsis [Unknown]
  - Fall [Unknown]
  - Delirium [Unknown]
  - Catheter site injury [Recovered/Resolved]
  - Accident [Unknown]
  - Bone contusion [Unknown]
  - Ligament sprain [Recovering/Resolving]

NARRATIVE: CASE EVENT DATE: 20190201
